FAERS Safety Report 5119760-X (Version None)
Quarter: 2006Q3

REPORT INFORMATION
  Report Type: 
  Country: None (occurrence: None)
  Receive Date: 20060928
  Receipt Date: 20060920
  Transmission Date: 20061208
  Serious: Yes (Other)
  Sender: FDA-Public Use
  Company Number: 2006113221

PATIENT
  Age: 52 Year
  Sex: Female
  Weight: 61.2356 kg

DRUGS (2)
  1. AROMASIN [Suspect]
     Indication: BREAST CANCER
     Dosage: 25 MG (25 MG, 1 IN 1 D), ORAL
     Route: 048
  2. VITAMINS [Concomitant]

REACTIONS (9)
  - BLOOD OESTROGEN DECREASED [None]
  - BREAST CYST [None]
  - CYST [None]
  - GASTROINTESTINAL DISORDER [None]
  - HEPATIC CYST [None]
  - HYSTERECTOMY [None]
  - MOOD SWINGS [None]
  - OVARIAN CYST [None]
  - OVARIAN ENLARGEMENT [None]
